FAERS Safety Report 5718477-8 (Version None)
Quarter: 2008Q2

REPORT INFORMATION
  Report Type: 
  Country: None (occurrence: None)
  Receive Date: 20080425
  Receipt Date: 20080415
  Transmission Date: 20081010
  Serious: Yes (Other)
  Sender: FDA-Public Use
  Company Number: US-PFIZER INC-2008014153

PATIENT
  Sex: Female
  Weight: 58.181 kg

DRUGS (5)
  1. CHANTIX [Suspect]
     Indication: SMOKING CESSATION THERAPY
  2. ENALAPRIL MALEATE [Concomitant]
     Dosage: TEXT:20 MG QD
  3. DILTIAZEM [Concomitant]
     Dosage: TEXT:180MG QD
  4. WELLBUTRIN [Concomitant]
  5. VYTORIN [Concomitant]
     Dosage: TEXT:10/40 MG QD

REACTIONS (7)
  - ABNORMAL DREAMS [None]
  - BALANCE DISORDER [None]
  - INNER EAR DISORDER [None]
  - NIGHT SWEATS [None]
  - POOR QUALITY SLEEP [None]
  - VOMITING [None]
  - WEIGHT INCREASED [None]
